FAERS Safety Report 5124303-0 (Version None)
Quarter: 2006Q4

REPORT INFORMATION
  Report Type: 
  Country: None (occurrence: None)
  Receive Date: 20061010
  Receipt Date: 20061005
  Transmission Date: 20070319
  Serious: Yes (Other)
  Sender: FDA-Public Use
  Company Number: GB-BOEHRINGER INGELHEIM PHARMACEUTICALS, INC.-2006-UK-04150UK

PATIENT
  Age: 74 Year
  Sex: Female
  Weight: 79.6 kg

DRUGS (8)
  1. MICARDIS (EU/1/98/090/1-14) [Suspect]
     Indication: HYPERTENSION
     Route: 048
     Dates: start: 20051201, end: 20060601
  2. SPIRONOLACTONE [Suspect]
     Indication: RIGHT VENTRICULAR FAILURE
     Route: 048
     Dates: start: 20051201, end: 20060601
  3. ALLOPURINOL [Concomitant]
     Route: 065
  4. BISOPROLOL FUMARATE [Concomitant]
     Route: 065
  5. ROSIGLITAZONE [Concomitant]
     Route: 065
  6. SIMVASTATIN [Concomitant]
     Route: 065
  7. TOLBUTAMIDE [Concomitant]
     Route: 065
  8. WARFARIN SODIUM [Concomitant]
     Route: 065

REACTIONS (2)
  - ANAEMIA [None]
  - NEUTROPENIA [None]
